FAERS Safety Report 12439295 (Version 2)
Quarter: 2016Q3

REPORT INFORMATION
  Report Type: Spontaneous
  Country: US (occurrence: US)
  Receive Date: 20160606
  Receipt Date: 20160705
  Transmission Date: 20161109
  Serious: Yes (Other)
  Sender: FDA-Public Use
  Company Number: US-BAYER-2016-109704

PATIENT
  Age: 34 Year
  Sex: Female

DRUGS (13)
  1. BETADINE [Concomitant]
     Active Substance: POVIDONE-IODINE
  2. PYRIDIUM [Concomitant]
     Active Substance: PHENAZOPYRIDINE
     Dosage: 100 MG, TID
     Route: 048
     Dates: end: 20151014
  3. YAZ [Concomitant]
     Active Substance: DROSPIRENONE\ETHINYL ESTRADIOL
     Dosage: 1 DF, QD (3-0.02 MG)
     Route: 048
     Dates: end: 20151014
  4. KEFLEX [Concomitant]
     Active Substance: CEPHALEXIN
     Dosage: 750 MG, BID
     Route: 048
     Dates: end: 20151014
  5. PENICILLIN V POTASSIUM. [Concomitant]
     Active Substance: PENICILLIN V POTASSIUM
     Dosage: 500 MG, BID
     Route: 048
     Dates: end: 20151014
  6. VITAFOL [FOLIC ACID] [Concomitant]
     Dosage: 1 DF, QD (65-1 MG)
     Route: 048
     Dates: end: 20151014
  7. MIRENA [Suspect]
     Active Substance: LEVONORGESTREL
     Indication: CONTRACEPTION
     Dosage: 20 MCG/24HR, CONT
     Route: 015
     Dates: start: 201501, end: 20160617
  8. FIORICET [Concomitant]
     Active Substance: ACETAMINOPHEN\BUTALBITAL\CAFFEINE
     Dosage: 1 DF, QID (50-300-40 MG)
     Route: 048
     Dates: end: 20151014
  9. MIRENA [Suspect]
     Active Substance: LEVONORGESTREL
     Indication: CONTRACEPTION
     Dosage: 20 MCG/24HR, CONT
     Route: 015
     Dates: start: 20141118
  10. CIPRO [Concomitant]
     Active Substance: CIPROFLOXACIN HYDROCHLORIDE
     Dosage: 500 MG, BID
     Route: 048
     Dates: end: 20151014
  11. DIFLUCAN [Concomitant]
     Active Substance: FLUCONAZOLE
     Dosage: 150 MG, QD
     Route: 048
     Dates: end: 20151014
  12. IBUPROFEN. [Concomitant]
     Active Substance: IBUPROFEN
     Dosage: 600 MG, 6ID
     Route: 048
     Dates: end: 20151014
  13. ZOFRAN [Concomitant]
     Active Substance: ONDANSETRON HYDROCHLORIDE
     Indication: NAUSEA
     Dosage: 4 MG, PRN
     Route: 048

REACTIONS (4)
  - Genital haemorrhage [None]
  - Abdominal pain [None]
  - Device dislocation [None]
  - Amenorrhoea [None]

NARRATIVE: CASE EVENT DATE: 2015
